FAERS Safety Report 7956420-1 (Version None)
Quarter: 2011Q4

REPORT INFORMATION
  Report Type: 
  Country: None (occurrence: None)
  Receive Date: 20111205
  Receipt Date: 20111128
  Transmission Date: 20120403
  Serious: Yes (Hospitalization)
  Sender: FDA-Public Use
  Company Number: US-UCBSA-045060

PATIENT
  Sex: Female

DRUGS (2)
  1. BUTRANS [Suspect]
  2. KEPPRA [Suspect]

REACTIONS (3)
  - NAUSEA [None]
  - HYPOTENSION [None]
  - VOMITING [None]
